FAERS Safety Report 24385755 (Version 2)
Quarter: 2025Q1

REPORT INFORMATION
  Report Type: Spontaneous
  Country: CL (occurrence: CL)
  Receive Date: 20241001
  Receipt Date: 20250320
  Transmission Date: 20250408
  Serious: Yes (Hospitalization)
  Sender: JOHNSON AND JOHNSON
  Company Number: CL-JNJFOC-20240967043

PATIENT
  Age: 43 Year
  Sex: Female

DRUGS (1)
  1. REMICADE [Suspect]
     Active Substance: INFLIXIMAB
     Indication: Product used for unknown indication
     Route: 041
     Dates: start: 202403, end: 202407

REACTIONS (3)
  - Crohn^s disease [Not Recovered/Not Resolved]
  - Dermatitis psoriasiform [Unknown]
  - Stress [Unknown]

NARRATIVE: CASE EVENT DATE: 20240101
